FAERS Safety Report 6405128-2 (Version None)
Quarter: 2009Q4

REPORT INFORMATION
  Report Type: 
  Country: None (occurrence: None)
  Receive Date: 20091013
  Receipt Date: 20090928
  Transmission Date: 20100525
  Serious: Yes (Death, Hospitalization)
  Sender: FDA-Public Use
  Company Number: 2009-02201

PATIENT
  Age: 54 Year
  Sex: Male

DRUGS (5)
  1. VELCADE [Suspect]
     Indication: MULTIPLE MYELOMA
  2. CNT0328(CNT0328) VIAL [Suspect]
     Indication: MULTIPLE MYELOMA
  3. PLACEBO [Suspect]
     Indication: MULTIPLE MYELOMA
  4. AMLODIPINE [Concomitant]
  5. ZOMETA [Concomitant]

REACTIONS (3)
  - ARRHYTHMIA [None]
  - HYPERKALAEMIA [None]
  - PNEUMONIA [None]
